FAERS Safety Report 5873247-5 (Version None)
Quarter: 2008Q3

REPORT INFORMATION
  Report Type: 
  Country: None (occurrence: None)
  Receive Date: 20080905
  Receipt Date: 20080905
  Transmission Date: 20090109
  Serious: Yes (Hospitalization)
  Sender: FDA-Public Use
  Company Number: None

PATIENT
  Age: 51 Year
  Sex: Female
  Weight: 48 kg

DRUGS (2)
  1. CETUXIMAB [Suspect]
     Indication: NON-SMALL CELL LUNG CANCER
     Dosage: 250MG/M2 = 375MG WEEKLY IV
     Route: 042
     Dates: start: 20080728
  2. PEMETREXED [Suspect]
     Indication: NON-SMALL CELL LUNG CANCER
     Dosage: 500MG/M2 = 750MG Q 3 WEEKS IV
     Route: 042
     Dates: start: 20080714

REACTIONS (2)
  - DYSPNOEA [None]
  - DYSPNOEA EXERTIONAL [None]
